FAERS Safety Report 8989101 (Version 1)
Quarter: 2012Q4

REPORT INFORMATION
  Report Type: 
  Country: US (occurrence: US)
  Receive Date: 20121228
  Receipt Date: 20121228
  Transmission Date: 20130627
  Serious: Yes (Hospitalization)
  Sender: FDA-Public Use
  Company Number: US-ELI_LILLY_AND_COMPANY-US201212006856

PATIENT
  Age: 66 Year
  Sex: Male

DRUGS (1)
  1. AXIRON [Suspect]
     Dosage: 60 mg, qd

REACTIONS (5)
  - Infection [Recovering/Resolving]
  - Knee arthroplasty [Recovering/Resolving]
  - Drug dispensing error [Unknown]
  - Pain [Unknown]
  - Impaired healing [Recovering/Resolving]
